FAERS Safety Report 7864551-X (Version None)
Quarter: 2011Q4

REPORT INFORMATION
  Report Type: 
  Country: None (occurrence: None)
  Receive Date: 20111028
  Receipt Date: 20111024
  Transmission Date: 20120403
  Serious: No
  Sender: FDA-Public Use
  Company Number: US-PFIZER INC-2011238197

PATIENT
  Sex: Female

DRUGS (2)
  1. REVATIO [Suspect]
     Indication: HEADACHE
  2. REVATIO [Suspect]
     Indication: PULMONARY ARTERIAL HYPERTENSION
     Dosage: 20 MG, 3X/DAY
     Route: 048
     Dates: start: 20091008

REACTIONS (1)
  - HEADACHE [None]
